FAERS Safety Report 24664731 (Version 4)
Quarter: 2025Q3

REPORT INFORMATION
  Report Type: Spontaneous
  Country: JP (occurrence: JP)
  Receive Date: 20241126
  Receipt Date: 20250810
  Transmission Date: 20251020
  Serious: Yes (Death)
  Sender: ALEXION PHARMACEUTICALS
  Company Number: JP-ASTRAZENECA-240132874_064320_P_1

PATIENT
  Age: 72 Year
  Sex: Male

DRUGS (4)
  1. ANDEXXA [Suspect]
     Active Substance: ANDEXANET ALFA
     Indication: Gastrointestinal haemorrhage
     Dates: start: 20240301, end: 20240301
  2. ANDEXXA [Suspect]
     Active Substance: ANDEXANET ALFA
     Indication: Septic coagulopathy
  3. EDOXABAN TOSYLATE [Concomitant]
     Active Substance: EDOXABAN TOSYLATE
  4. ASPIRIN [Concomitant]
     Active Substance: ASPIRIN
     Route: 065

REACTIONS (2)
  - Septic shock [Fatal]
  - Gastrointestinal necrosis [Fatal]
